FAERS Safety Report 23642644 (Version 2)
Quarter: 2024Q2

REPORT INFORMATION
  Report Type: Spontaneous
  Country: US (occurrence: US)
  Receive Date: 20240318
  Receipt Date: 20240429
  Transmission Date: 20240716
  Serious: Yes (Hospitalization, Other)
  Sender: FDA-Public Use
  Company Number: US-SERVIER-S24002652

PATIENT

DRUGS (28)
  1. ASPARLAS [Suspect]
     Active Substance: CALASPARGASE PEGOL-MKNL
     Indication: B-cell type acute leukaemia
     Dosage: UNK, ONE DOSE
     Route: 042
     Dates: start: 20240121
  2. PURINETHOL [Suspect]
     Active Substance: MERCAPTOPURINE
     Indication: B-cell type acute leukaemia
     Dosage: 825 MG, EVERY 1 WEEK
     Route: 048
     Dates: start: 20240222, end: 20240306
  3. VINCRISTINE [Suspect]
     Active Substance: VINCRISTINE
     Indication: B-cell type acute leukaemia
     Dosage: 1.5 MG/M2, OTHER
     Route: 042
     Dates: start: 20240118
  4. DAUNORUBICIN [Suspect]
     Active Substance: DAUNORUBICIN
     Indication: B-cell type acute leukaemia
     Dosage: 25 MG/M2, OTHER
     Route: 042
     Dates: start: 20240118
  5. PREDNISOLONE [Suspect]
     Active Substance: PREDNISOLONE
     Indication: B-cell type acute leukaemia
     Dosage: 30 MG/M2, QD
     Route: 048
     Dates: start: 20240118
  6. FONDAPARINUX [Suspect]
     Active Substance: FONDAPARINUX
     Indication: Pulmonary embolism
     Route: 065
  7. METHOTREXATE [Suspect]
     Active Substance: METHOTREXATE
     Indication: B-cell type acute leukaemia
     Dosage: 15 MG, OTHER
     Route: 037
     Dates: start: 20240118
  8. CYTARABINE [Suspect]
     Active Substance: CYTARABINE
     Indication: B-cell type acute leukaemia
     Dosage: 70 MG, ONE DOSE
     Route: 037
     Dates: start: 20240118
  9. CYTARABINE [Suspect]
     Active Substance: CYTARABINE
     Dosage: 75 MG, ONE DOSE
     Route: 037
     Dates: start: 20240222
  10. CYCLOPHOSPHAMIDE [Suspect]
     Active Substance: CYCLOPHOSPHAMIDE
     Indication: B-cell type acute leukaemia
     Dosage: 1000 MG/M2, OTHER
     Route: 042
     Dates: start: 20240222
  11. CELEBREX [Concomitant]
     Active Substance: CELECOXIB
     Indication: Pain
     Dosage: 100 MG, BID
     Route: 065
     Dates: start: 20240205
  12. PERIDEX [Concomitant]
     Active Substance: CHLORHEXIDINE GLUCONATE
     Dosage: 5 ML, QID
     Route: 065
     Dates: start: 20240119, end: 20240307
  13. FLEXERIL [Concomitant]
     Active Substance: CYCLOBENZAPRINE HYDROCHLORIDE
     Indication: Muscle spasms
     Dosage: 5 MG, TID
     Route: 065
     Dates: start: 20240227, end: 20240307
  14. CYPROHEPTADINE HYDROCHLORIDE [Concomitant]
     Active Substance: CYPROHEPTADINE HYDROCHLORIDE
     Indication: Product used for unknown indication
     Dosage: 4 MG, TID
     Route: 065
     Dates: start: 20240301, end: 20240307
  15. KYTRIL [Concomitant]
     Active Substance: GRANISETRON HYDROCHLORIDE
     Indication: Nausea
     Dosage: 1 MG, BID
     Route: 065
     Dates: start: 20240208, end: 20240307
  16. KYTRIL [Concomitant]
     Active Substance: GRANISETRON HYDROCHLORIDE
     Indication: Vomiting
  17. Ataraxone [Concomitant]
     Indication: Nausea
     Dosage: 50 MG, QID
     Route: 065
     Dates: start: 20240228, end: 20240306
  18. Ataraxone [Concomitant]
     Indication: Vomiting
  19. LEVAQUIN [Concomitant]
     Active Substance: LEVOFLOXACIN
     Indication: Prophylaxis
     Dosage: 750 MG, QD
     Route: 065
     Dates: start: 20240301, end: 20240307
  20. EMLA [Concomitant]
     Active Substance: LIDOCAINE\PRILOCAINE
     Indication: Pain
     Dosage: UNK
     Route: 065
     Dates: start: 20240119, end: 20240307
  21. TOPROL XL [Concomitant]
     Active Substance: METOPROLOL SUCCINATE
     Indication: Product used for unknown indication
     Dosage: 50 MG, BID
     Route: 065
     Dates: start: 20240201, end: 20240307
  22. MORPHINE [Concomitant]
     Active Substance: MORPHINE
     Indication: Pain
     Dosage: 7.5 MG, AS REQ^D
     Route: 065
     Dates: start: 20240301, end: 20240306
  23. MIRALAX [Concomitant]
     Active Substance: POLYETHYLENE GLYCOL 3350
     Indication: Constipation
     Dosage: 17 G, BID
     Route: 065
     Dates: start: 20240119, end: 20240307
  24. SENOKOT [Concomitant]
     Active Substance: SENNOSIDES
     Indication: Constipation
     Dosage: 2 UNK, AS REQ^D
     Route: 065
     Dates: start: 20240126, end: 20240306
  25. BACTRIM DS [Concomitant]
     Active Substance: SULFAMETHOXAZOLE\TRIMETHOPRIM
     Indication: Prophylaxis
     Dosage: 160 MG, UNKNOWN
     Route: 065
     Dates: start: 20240217, end: 20240303
  26. IMITREX [Concomitant]
     Active Substance: SUMATRIPTAN SUCCINATE
     Indication: Migraine
     Dosage: 50 MG, UNKNOWN
     Route: 065
     Dates: start: 20240222, end: 20240306
  27. VFEND [Concomitant]
     Active Substance: VORICONAZOLE
     Indication: Prophylaxis
     Dosage: 200 MG, BID
     Route: 065
     Dates: start: 20240301, end: 20240307
  28. LEUPROLIDE [Concomitant]
     Active Substance: LEUPROLIDE
     Dosage: 11.25 MG, UNKNOWN
     Route: 065
     Dates: start: 20240119

REACTIONS (3)
  - Pulmonary embolism [Recovering/Resolving]
  - Pancytopenia [Recovering/Resolving]
  - Haemorrhage [Recovering/Resolving]

NARRATIVE: CASE EVENT DATE: 20240307
